FAERS Safety Report 5370169-3 (Version None)
Quarter: 2007Q2

REPORT INFORMATION
  Report Type: 
  Country: None (occurrence: None)
  Receive Date: 20070613
  Receipt Date: 20070405
  Transmission Date: 20071010
  Serious: Yes (Other)
  Sender: FDA-Public Use
  Company Number: IND-AE-07-SAN-016

PATIENT
  Age: 33 Year
  Sex: Male
  Weight: 163.2949 kg

DRUGS (4)
  1. SANCTURA [Suspect]
     Indication: MICTURITION URGENCY
     Dosage: 20MG - BID - ORAL
     Route: 048
  2. XANAX [Concomitant]
  3. WELLBUTRIN [Concomitant]
  4. METHADONE HCL [Concomitant]

REACTIONS (1)
  - HALLUCINATION [None]
